FAERS Safety Report 5226243-5 (Version None)
Quarter: 2007Q1

REPORT INFORMATION
  Report Type: 
  Country: None (occurrence: None)
  Receive Date: 20070201
  Receipt Date: 20070122
  Transmission Date: 20070707
  Serious: Yes (Hospitalization)
  Sender: FDA-Public Use
  Company Number: PHBS2007FI01580

PATIENT
  Sex: Male

DRUGS (1)
  1. ZOMETA [Suspect]
     Indication: METASTASES TO BONE
     Route: 042
     Dates: start: 20061219

REACTIONS (4)
  - BLADDER CATHETERISATION [None]
  - DYSURIA [None]
  - URINARY RETENTION [None]
  - URINE OUTPUT DECREASED [None]
